FAERS Safety Report 21635901 (Version 3)
Quarter: 2022Q4

REPORT INFORMATION
  Report Type: Spontaneous
  Country: CO (occurrence: CO)
  Receive Date: 20221123
  Receipt Date: 20221207
  Transmission Date: 20230113
  Serious: Yes (Hospitalization, Other)
  Sender: FDA-Public Use
  Company Number: CO-PFIZER INC-PV202200082965

PATIENT
  Age: 66 Year
  Sex: Female

DRUGS (1)
  1. ENBREL [Suspect]
     Active Substance: ETANERCEPT
     Indication: Rheumatoid arthritis
     Dosage: 25 MG, EVERY 8 DAYS
     Route: 058
     Dates: start: 2017

REACTIONS (11)
  - Cerebrovascular disorder [Recovering/Resolving]
  - Loss of consciousness [Unknown]
  - Loss of personal independence in daily activities [Recovering/Resolving]
  - Off label use [Unknown]
  - Neck pain [Unknown]
  - Pain in extremity [Unknown]
  - Peripheral swelling [Unknown]
  - Joint swelling [Unknown]
  - Nodule [Unknown]
  - Malaise [Recovering/Resolving]
  - Blood calcium decreased [Recovering/Resolving]

NARRATIVE: CASE EVENT DATE: 20221101
